FAERS Safety Report 18517132 (Version 1)
Quarter: 2020Q4

REPORT INFORMATION
  Report Type: Spontaneous
  Country: US (occurrence: US)
  Receive Date: 20201118
  Receipt Date: 20201118
  Transmission Date: 20210114
  Serious: Yes (Other)
  Sender: FDA-Public Use
  Company Number: US-TEVA-2020-US-1849860

PATIENT
  Age: 61 Year
  Sex: Male
  Weight: 65.32 kg

DRUGS (1)
  1. TESTOSTERONE TEVA [Suspect]
     Active Substance: TESTOSTERONE
     Indication: BODY MASS INDEX ABNORMAL
     Route: 061
     Dates: start: 2018, end: 202007

REACTIONS (2)
  - Weight decreased [Not Recovered/Not Resolved]
  - Prostate cancer stage III [Not Recovered/Not Resolved]

NARRATIVE: CASE EVENT DATE: 2020
